FAERS Safety Report 18492125 (Version 4)
Quarter: 2020Q4

REPORT INFORMATION
  Report Type: Spontaneous
  Country: US (occurrence: US)
  Receive Date: 20201111
  Receipt Date: 20201217
  Transmission Date: 20210114
  Serious: No
  Sender: FDA-Public Use
  Company Number: US-PFIZER INC-2020443508

PATIENT
  Age: 52 Year
  Sex: Female

DRUGS (1)
  1. IBRANCE [Suspect]
     Active Substance: PALBOCICLIB
     Indication: BREAST CANCER FEMALE
     Dosage: 75 MG, CYCLIC (ONCE A DAY, 21 DAYS FOLLOWED BY 7 DAYS OFF)
     Route: 048
     Dates: start: 20180223

REACTIONS (5)
  - Arthralgia [Not Recovered/Not Resolved]
  - Neutrophil count decreased [Unknown]
  - Nausea [Unknown]
  - Bowel movement irregularity [Not Recovered/Not Resolved]
  - Myalgia [Unknown]
